FAERS Safety Report 6672849-6 (Version None)
Quarter: 2010Q2

REPORT INFORMATION
  Report Type: 
  Country: None (occurrence: None)
  Receive Date: 20100408
  Receipt Date: 20100326
  Transmission Date: 20101027
  Serious: Yes (Life-Threatening, Hospitalization, Other)
  Sender: FDA-Public Use
  Company Number: PHHY2010DE19569

PATIENT
  Sex: Male
  Weight: 95 kg

DRUGS (17)
  1. ALISKIREN ALI+ [Suspect]
     Indication: HYPERTENSION
     Dosage: 150 MG, PER DAY
     Route: 048
     Dates: start: 20081210
  2. LOCOL [Suspect]
     Dosage: 80 MG, PER DAY
     Route: 048
     Dates: start: 20030311
  3. DIURETICS [Concomitant]
  4. NITRATES [Concomitant]
  5. ASPIRIN [Concomitant]
     Dosage: 100 MG, PER DAY
     Route: 048
     Dates: start: 20030311
  6. ISCOVER [Concomitant]
     Dosage: 75 MG, PER DAY
     Route: 048
     Dates: start: 20030430
  7. BISOPROLOL [Concomitant]
     Dosage: 10 MG, PER DAY
     Dates: start: 20030311
  8. RAMIPRIL [Concomitant]
     Dosage: 5 MG, PER DAY
     Route: 048
     Dates: start: 20091021
  9. PANTOPRAZOLE [Concomitant]
     Dosage: 40 MG, PER DAY
     Route: 048
     Dates: start: 20090921
  10. TORSEMIDE [Concomitant]
     Dosage: 5 MG, PER DAY
     Route: 048
     Dates: start: 20090921
  11. ALFUZOSIN HCL [Concomitant]
     Dosage: 10 MG, PER DAY
     Route: 048
     Dates: start: 20091021
  12. TILIDINE [Concomitant]
     Dosage: 100 MG, PER DAY
     Route: 048
     Dates: start: 20030311
  13. NOVAMINSULFON [Concomitant]
     Dosage: UNK
     Route: 048
     Dates: start: 20030311
  14. PILOMANN [Concomitant]
     Dosage: UNK
     Route: 048
     Dates: start: 20030311
  15. AMLODIPINE [Concomitant]
     Dosage: 5 MG, PER DAY
     Route: 048
     Dates: start: 19980101, end: 20090601
  16. LISIGAMMA [Concomitant]
     Dosage: 20 MG, PER DAY
     Route: 048
     Dates: start: 20030311, end: 20081210
  17. ANTIPLATELET [Concomitant]

REACTIONS (17)
  - ANGINA PECTORIS [None]
  - ANGIOGRAM [None]
  - BLOOD PRESSURE INCREASED [None]
  - CORONARY ANGIOPLASTY [None]
  - CORONARY ARTERY DISEASE [None]
  - DYSPNOEA [None]
  - GAMMOPATHY [None]
  - HYPERCHOLESTEROLAEMIA [None]
  - HYPERLIPIDAEMIA [None]
  - HYPERTENSIVE HEART DISEASE [None]
  - LEFT VENTRICULAR FAILURE [None]
  - OBESITY [None]
  - OSTEONECROSIS [None]
  - PERCUTANEOUS CORONARY INTERVENTION [None]
  - RENAL DISORDER [None]
  - STENT PLACEMENT [None]
  - VASCULAR GRAFT [None]
